FAERS Safety Report 8598846-1 (Version None)
Quarter: 2012Q3

REPORT INFORMATION
  Report Type: 
  Country: None (occurrence: None)
  Receive Date: 20120816
  Receipt Date: 20120810
  Transmission Date: 20120928
  Serious: Yes (Other)
  Sender: FDA-Public Use
  Company Number: JP-GLAXOSMITHKLINE-B0822553A

PATIENT
  Age: 71 Year
  Sex: Female

DRUGS (4)
  1. LIPITOR [Concomitant]
     Route: 048
  2. HEPSERA [Suspect]
     Indication: HEPATIC CIRRHOSIS
     Route: 048
     Dates: start: 20080301
  3. LAMIVUDINE (EPIVIR HBV) [Suspect]
     Indication: HEPATIC CIRRHOSIS
     Route: 048
  4. FAMOTIDINE [Concomitant]
     Route: 065

REACTIONS (1)
  - OSTEOMALACIA [None]
